FAERS Safety Report 7902587-0 (Version None)
Quarter: 2011Q4

REPORT INFORMATION
  Report Type: 
  Country: None (occurrence: None)
  Receive Date: 20111108
  Receipt Date: 20111024
  Transmission Date: 20120403
  Serious: Yes (Hospitalization, Other)
  Sender: FDA-Public Use
  Company Number: TR-WATSON-2011-17691

PATIENT
  Age: 20 Year
  Sex: Female

DRUGS (1)
  1. NAPROXEN [Suspect]
     Dosage: UNK UNK, UNKNOWN
     Route: 065

REACTIONS (8)
  - KOUNIS SYNDROME [None]
  - CHEST PAIN [None]
  - ELECTROCARDIOGRAM ST SEGMENT DEPRESSION [None]
  - DYSPNOEA [None]
  - URTICARIA [None]
  - ERYTHEMA [None]
  - VOMITING [None]
  - NAUSEA [None]
